FAERS Safety Report 7092161-3 (Version None)
Quarter: 2010Q4

REPORT INFORMATION
  Report Type: 
  Country: None (occurrence: None)
  Receive Date: 20101109
  Receipt Date: 20101027
  Transmission Date: 20110411
  Serious: Yes (Other)
  Sender: FDA-Public Use
  Company Number: CA-ELI_LILLY_AND_COMPANY-CA201010006410

PATIENT
  Age: 92 Year
  Sex: Female

DRUGS (1)
  1. FORTEO [Suspect]

REACTIONS (1)
  - BREAST CANCER [None]
